FAERS Safety Report 9386138 (Version 1)
Quarter: 2013Q3

REPORT INFORMATION
  Report Type: Spontaneous
  Country: US (occurrence: US)
  Receive Date: 20130707
  Receipt Date: 20130707
  Transmission Date: 20140515
  Serious: No
  Sender: FDA-Public Use
  Company Number: US-ALLERGAN-1304966US

PATIENT
  Age: 65 Year
  Sex: Female

DRUGS (8)
  1. LUMIGAN? 0.01% [Suspect]
     Indication: INTRAOCULAR PRESSURE INCREASED
     Dosage: 2 GTT, QHS
     Route: 047
     Dates: start: 20130315, end: 20130316
  2. LUMIGAN? 0.01% [Suspect]
     Dosage: 2 GTT, QHS
     Route: 047
     Dates: start: 2012, end: 2012
  3. RESTASIS? [Concomitant]
     Indication: DRY EYE
     Dosage: 2 GTT, BID
     Route: 047
     Dates: start: 2012
  4. BLOOD PRESSURE MEDICATION NOS [Concomitant]
     Indication: HYPERTENSION
     Dosage: UNK
  5. POTASSIUM [Concomitant]
     Indication: HYPERTENSION
     Dosage: UNK
  6. DIABETES MEDICATION NOS [Concomitant]
     Indication: TYPE 2 DIABETES MELLITUS
     Dosage: UNK
     Route: 048
  7. DIURETIC NOS [Concomitant]
     Indication: HYPERTENSION
     Dosage: UNK
  8. REFRESH OPTIVE [Concomitant]
     Indication: DRY EYE
     Dosage: UNK

REACTIONS (5)
  - Asthenopia [Recovering/Resolving]
  - Eyelid ptosis [Recovering/Resolving]
  - Eye movement disorder [Recovering/Resolving]
  - Fatigue [Recovering/Resolving]
  - Impaired driving ability [Unknown]
